FAERS Safety Report 5979641-6 (Version None)
Quarter: 2008Q4

REPORT INFORMATION
  Report Type: 
  Country: None (occurrence: None)
  Receive Date: 20081204
  Receipt Date: 20081121
  Transmission Date: 20090506
  Serious: Yes (Hospitalization, Disabling, Other)
  Sender: FDA-Public Use
  Company Number: US-MERCK-0809USA03875

PATIENT
  Age: 80 Year
  Sex: Female

DRUGS (2)
  1. FOSAMAX PLUS D [Suspect]
     Indication: OSTEOPOROSIS
     Route: 048
     Dates: start: 20060901, end: 20080301
  2. FOSAMAX [Suspect]
     Indication: OSTEOPOROSIS
     Route: 048
     Dates: start: 19990719, end: 20060901

REACTIONS (8)
  - ADVERSE DRUG REACTION [None]
  - FALL [None]
  - FEMUR FRACTURE [None]
  - HIP FRACTURE [None]
  - HYPOTENSION [None]
  - OESOPHAGEAL STENOSIS [None]
  - SYNCOPE [None]
  - URINE OUTPUT DECREASED [None]
